FAERS Safety Report 4880635-2 (Version None)
Quarter: 2006Q1

REPORT INFORMATION
  Report Type: 
  Country: None (occurrence: None)
  Receive Date: 20060113
  Receipt Date: 20041026
  Transmission Date: 20060701
  Serious: Yes (Hospitalization, Disabling, Other)
  Sender: FDA-Public Use
  Company Number: US-MERCK-0410USA03993

PATIENT
  Age: 43 Year
  Sex: Male
  Weight: 113 kg

DRUGS (4)
  1. VIOXX [Suspect]
     Indication: GOUT
     Route: 048
     Dates: start: 20010701, end: 20050101
  2. BEXTRA [Suspect]
     Route: 065
     Dates: start: 20010101, end: 20030501
  3. BEXTRA [Suspect]
     Route: 065
     Dates: start: 20030501, end: 20050101
  4. COLCHICINE [Concomitant]
     Route: 065

REACTIONS (5)
  - CARDIAC FAILURE CONGESTIVE [None]
  - CARDIOMEGALY [None]
  - OVERDOSE [None]
  - PAIN [None]
  - PULMONARY EMBOLISM [None]
